FAERS Safety Report 8914876 (Version 1)
Quarter: 2012Q4

REPORT INFORMATION
  Report Type: 
  Country: VE (occurrence: VE)
  Receive Date: 20121119
  Receipt Date: 20121119
  Transmission Date: 20130627
  Serious: Yes (Hospitalization)
  Sender: FDA-Public Use
  Company Number: VE-ROCHE-GNE313849

PATIENT
  Sex: Female

DRUGS (4)
  1. XOLAIR [Suspect]
     Indication: BRONCHOSPASM
     Dosage: 750 mg, 1/Month
     Route: 058
     Dates: start: 201003
  2. XOLAIR [Suspect]
     Indication: OFF LABEL USE
  3. FORADIL [Concomitant]
     Indication: PRODUCT USED FOR UNKNOWN INDICATION
  4. MIFLONIDE [Concomitant]
     Indication: PRODUCT USED FOR UNKNOWN INDICATION

REACTIONS (1)
  - Influenza [Unknown]
